FAERS Safety Report 10501262 (Version 1)
Quarter: 2014Q4

REPORT INFORMATION
  Report Type: Spontaneous
  Country: US (occurrence: None)
  Receive Date: 20141006
  Receipt Date: 20141006
  Transmission Date: 20150528
  Serious: Yes (Hospitalization)
  Sender: FDA-Public Use
  Company Number: None

PATIENT
  Age: 54 Year
  Sex: Male
  Weight: 63.5 kg

DRUGS (2)
  1. PACLITAXEL. [Suspect]
     Active Substance: PACLITAXEL
     Dates: start: 20120815, end: 20121004
  2. CARBOPLATIN. [Suspect]
     Active Substance: CARBOPLATIN
     Dates: start: 20120501, end: 20140604

REACTIONS (5)
  - Septic shock [None]
  - Pleural effusion [None]
  - Pseudomonal bacteraemia [None]
  - Anastomotic leak [None]
  - Wound dehiscence [None]

NARRATIVE: CASE EVENT DATE: 20120815
